FAERS Safety Report 9190279 (Version 2)
Quarter: 2013Q2

REPORT INFORMATION
  Report Type: Spontaneous
  Country: US (occurrence: US)
  Receive Date: 20130326
  Receipt Date: 20130426
  Transmission Date: 20140414
  Serious: Yes (Other)
  Sender: FDA-Public Use
  Company Number: US-BAYER-2013-035965

PATIENT
  Age: 52 Year
  Sex: Male
  Weight: 72.5 kg

DRUGS (2)
  1. STIVARGA [Suspect]
     Indication: RECTAL CANCER METASTATIC
     Dosage: 160 MG DAILY
     Dates: start: 20130312, end: 20130316
  2. TRILEPTAL [Concomitant]
     Dosage: 600 MG, BID
     Route: 048

REACTIONS (4)
  - Hypersensitivity [None]
  - Swollen tongue [None]
  - Lip swelling [None]
  - Rash macular [None]
